FAERS Safety Report 5875963-8 (Version None)
Quarter: 2008Q3

REPORT INFORMATION
  Report Type: 
  Country: None (occurrence: None)
  Receive Date: 20080905
  Receipt Date: 20080822
  Transmission Date: 20090109
  Serious: Yes (Life-Threatening, Hospitalization)
  Sender: FDA-Public Use
  Company Number: 080827-0000645

PATIENT
  Age: 26 Year
  Sex: Female

DRUGS (4)
  1. TRANXENE [Suspect]
     Indication: SUICIDE ATTEMPT
     Dosage: 10 MG;    ;OP
     Route: 048
     Dates: end: 20080107
  2. ANAFRANIL [Suspect]
     Indication: SUICIDE ATTEMPT
     Dosage: 75 MG;       ;OP
     Route: 048
     Dates: end: 20080107
  3. TERCIAN (CYAMEMAZINE) [Suspect]
     Indication: SUICIDE ATTEMPT
     Dosage: 25 MG;        ;OP
     Route: 048
     Dates: end: 20080107
  4. SEROPLEX (NO PREF. NAME) [Suspect]
     Indication: SUICIDE ATTEMPT
     Dosage: ;OP
     Route: 048
     Dates: end: 20080107

REACTIONS (9)
  - BLOOD ALCOHOL INCREASED [None]
  - COMA [None]
  - DRUG TOXICITY [None]
  - INCORRECT DOSE ADMINISTERED [None]
  - LEUKOCYTOSIS [None]
  - PNEUMONIA ASPIRATION [None]
  - PNEUMONIA STAPHYLOCOCCAL [None]
  - RHONCHI [None]
  - SUICIDE ATTEMPT [None]
